FAERS Safety Report 8169823-X (Version None)
Quarter: 2012Q1

REPORT INFORMATION
  Report Type: 
  Country: None (occurrence: None)
  Receive Date: 20120228
  Receipt Date: 20120223
  Transmission Date: 20120608
  Serious: Yes (Death)
  Sender: FDA-Public Use
  Company Number: GB-JNJFOC-20111210457

PATIENT
  Age: 49 Year
  Sex: Male

DRUGS (1)
  1. PALIPERDONE PALMITATE [Suspect]
     Indication: PRODUCT USED FOR UNKNOWN INDICATION
     Route: 030
     Dates: start: 20111003

REACTIONS (5)
  - SEPSIS [None]
  - DIZZINESS [None]
  - HYPOXIA [None]
  - TACHYCARDIA [None]
  - DYSPNOEA [None]
